FAERS Safety Report 7644525 (Version 3)
Quarter: 2013Q2

REPORT INFORMATION
  Report Type: Report from Study
  Country: MX (occurrence: MX)
  Receive Date: 20101028
  Receipt Date: 20130502
  Transmission Date: 20140414
  Serious: Yes (Death, Other)
  Sender: FDA-Public Use
  Company Number: PHHY2010MX69438

PATIENT
  Age: 92 Year
  Sex: Male

DRUGS (1)
  1. EXELON PATCH [Suspect]
     Indication: DEMENTIA ALZHEIMER^S TYPE
     Dosage: 4.6 MG, DAILY
     Route: 062
     Dates: start: 201009, end: 20120906

REACTIONS (3)
  - Pancreatic carcinoma [Fatal]
  - Cerebral infarction [Unknown]
  - Emotional disorder [Unknown]
